FAERS Safety Report 13868018 (Version 4)
Quarter: 2022Q3

REPORT INFORMATION
  Report Type: Report from Study
  Country: US (occurrence: US)
  Receive Date: 20170814
  Receipt Date: 20220804
  Transmission Date: 20221026
  Serious: No
  Sender: FDA-Public Use
  Company Number: US-ACADIA PHARMACEUTICALS INC.-ACA-2017-004561

PATIENT
  Age: 66 Year
  Sex: Male

DRUGS (9)
  1. NUPLAZID [Suspect]
     Active Substance: PIMAVANSERIN TARTRATE
     Indication: Rapid eye movement sleep behaviour disorder
     Dosage: 54 MILLIGRAM (34MG CAPSULE+TWO 10MG TABLETS), QD
     Route: 048
     Dates: start: 20190126
  2. NUPLAZID [Suspect]
     Active Substance: PIMAVANSERIN TARTRATE
     Indication: Parkinson^s disease
  3. NUPLAZID [Suspect]
     Active Substance: PIMAVANSERIN TARTRATE
     Indication: Rapid eye movement sleep behaviour disorder
     Dosage: 54 MILLIGRAM (34MG CAPSULE+TWO 10MG TABLETS), QD
     Route: 048
     Dates: start: 20190126
  4. NUPLAZID [Suspect]
     Active Substance: PIMAVANSERIN TARTRATE
     Indication: Parkinson^s disease
  5. NUPLAZID [Suspect]
     Active Substance: PIMAVANSERIN TARTRATE
     Indication: Parkinson^s disease
     Dosage: 17 MG, QD
     Route: 048
     Dates: start: 20170629
  6. NUPLAZID [Suspect]
     Active Substance: PIMAVANSERIN TARTRATE
     Dosage: 51 MG, QD
     Route: 048
     Dates: start: 2018
  7. CLONAZEPAM [Concomitant]
     Active Substance: CLONAZEPAM
     Indication: Product used for unknown indication
  8. PRAZOSIN [Concomitant]
     Active Substance: PRAZOSIN
     Indication: Product used for unknown indication
  9. CHOLECALCIFEROL\FISH OIL [Concomitant]
     Active Substance: CHOLECALCIFEROL\FISH OIL

REACTIONS (7)
  - Toe operation [Not Recovered/Not Resolved]
  - Weight decreased [Unknown]
  - Prescribed underdose [Unknown]
  - Condition aggravated [Not Recovered/Not Resolved]
  - Prescribed overdose [Unknown]
  - Overdose [Not Recovered/Not Resolved]
  - Off label use [Not Recovered/Not Resolved]

NARRATIVE: CASE EVENT DATE: 20170629
